FAERS Safety Report 14947637 (Version 1)
Quarter: 2018Q2

REPORT INFORMATION
  Report Type: Spontaneous
  Country: CA (occurrence: CA)
  Receive Date: 20180529
  Receipt Date: 20180529
  Transmission Date: 20180711
  Serious: Yes (Other)
  Sender: FDA-Public Use
  Company Number: CA-ALLERGAN-1828080US

PATIENT
  Age: 66 Year
  Sex: Female

DRUGS (1)
  1. COMBIGAN [Suspect]
     Active Substance: BRIMONIDINE TARTRATE\TIMOLOL MALEATE
     Indication: GLAUCOMA
     Dosage: UNK
     Route: 047

REACTIONS (20)
  - Chromaturia [Unknown]
  - Depressed mood [Unknown]
  - Heart rate increased [Unknown]
  - Madarosis [Unknown]
  - Burning sensation [Unknown]
  - Decreased appetite [Unknown]
  - Eyelid disorder [Unknown]
  - Eye swelling [Unknown]
  - Hypersomnia [Unknown]
  - Hypoaesthesia [Unknown]
  - Urine odour abnormal [Unknown]
  - Pruritus generalised [Unknown]
  - Pain [Unknown]
  - Eye pain [Unknown]
  - Oral discomfort [Unknown]
  - Fatigue [Unknown]
  - Feeling abnormal [Unknown]
  - Intraocular pressure increased [Unknown]
  - Weight decreased [Unknown]
  - Paraesthesia [Unknown]
